FAERS Safety Report 9128514 (Version 1)
Quarter: 2013Q1

REPORT INFORMATION
  Report Type: Spontaneous
  Country: US (occurrence: US)
  Receive Date: 20130228
  Receipt Date: 20130228
  Transmission Date: 20140127
  Serious: No
  Sender: FDA-Public Use
  Company Number: US-GLAXOSMITHKLINE-A1000000A

PATIENT
  Sex: Male

DRUGS (2)
  1. IMITREX [Suspect]
     Indication: MIGRAINE
  2. UNSPECIFIED MEDICATION [Suspect]
     Indication: MIGRAINE PROPHYLAXIS

REACTIONS (5)
  - Swelling face [Unknown]
  - Lip swelling [Unknown]
  - Swollen tongue [Unknown]
  - Memory impairment [Unknown]
  - Fatigue [Unknown]
